FAERS Safety Report 4849496-1 (Version None)
Quarter: 2005Q4

REPORT INFORMATION
  Report Type: 
  Country: None (occurrence: None)
  Receive Date: 20051130
  Receipt Date: 20051130
  Transmission Date: 20060501
  Serious: No
  Sender: FDA-Public Use
  Company Number: None

PATIENT
  Age: 33 Year
  Sex: Female
  Weight: 100 kg

DRUGS (6)
  1. PROVIGIL [Suspect]
     Indication: SOMNOLENCE
     Dosage: 1 PO Q AM
     Dates: start: 20020101, end: 20030101
  2. PROVIGIL [Suspect]
     Indication: SOMNOLENCE
     Dosage: 1 PO Q AM
     Dates: start: 20040101, end: 20050101
  3. UNKNOWN SSRI [Concomitant]
  4. CLONAZEPAM [Concomitant]
  5. XANAX [Concomitant]
  6. AMBIEN [Concomitant]

REACTIONS (1)
  - SOMNOLENCE [None]
